FAERS Safety Report 5035652-9 (Version None)
Quarter: 2006Q2

REPORT INFORMATION
  Report Type: 
  Country: None (occurrence: None)
  Receive Date: 20060526
  Receipt Date: 20060208
  Transmission Date: 20061013
  Serious: Yes (Hospitalization)
  Sender: FDA-Public Use
  Company Number: FABR-11398

PATIENT
  Age: 53 Year
  Sex: Male
  Weight: 69 kg

DRUGS (16)
  1. FABRAZYME [Suspect]
     Indication: FABRY'S DISEASE
     Dosage: 70 MG Q2WKS IV
     Route: 042
     Dates: start: 20030630
  2. VICODIN [Concomitant]
  3. PERCOCET [Concomitant]
  4. CYCLOSPORINE [Concomitant]
  5. IMURAN [Concomitant]
  6. PREDNISONE TAB [Concomitant]
  7. ASPIRIN [Concomitant]
  8. COUMADIN [Concomitant]
  9. ACIPHEX [Concomitant]
  10. VITAMIN A [Concomitant]
  11. VITAMIN D [Concomitant]
  12. VITAMIN B COMPLEX CAP [Concomitant]
  13. ASCORBIC ACID [Concomitant]
  14. VITAMIN E [Concomitant]
  15. SAW PALMETTO [Concomitant]
  16. CALCIUM/MAGNESIUM [Concomitant]

REACTIONS (3)
  - CEREBROVASCULAR ACCIDENT [None]
  - PAIN [None]
  - PYREXIA [None]
